FAERS Safety Report 4940254-6 (Version None)
Quarter: 2006Q1

REPORT INFORMATION
  Report Type: 
  Country: None (occurrence: None)
  Receive Date: 20060310
  Receipt Date: 20051013
  Transmission Date: 20060701
  Serious: Yes (Other)
  Sender: FDA-Public Use
  Company Number: PR-MERCK-0510USA07415

PATIENT
  Age: 63 Year
  Sex: Female
  Weight: 73 kg

DRUGS (3)
  1. VIOXX [Suspect]
     Indication: OSTEOARTHRITIS
     Route: 048
     Dates: start: 20030101, end: 20040101
  2. INSULIN [Concomitant]
     Route: 065
  3. AVAPRO [Concomitant]
     Route: 065

REACTIONS (9)
  - CEREBROVASCULAR ACCIDENT [None]
  - DEPRESSION [None]
  - DIABETES MELLITUS [None]
  - DIZZINESS [None]
  - FATIGUE [None]
  - GLOSSODYNIA [None]
  - HYPERTENSION [None]
  - POLLAKIURIA [None]
  - SPEECH DISORDER [None]
